FAERS Safety Report 6895119-X (Version None)
Quarter: 2010Q3

REPORT INFORMATION
  Report Type: 
  Country: None (occurrence: None)
  Receive Date: 20100802
  Receipt Date: 20100728
  Transmission Date: 20110219
  Serious: Yes (Hospitalization, Other)
  Sender: FDA-Public Use
  Company Number: US-JNJCH-2009031644

PATIENT
  Age: 58 Year
  Sex: Female

DRUGS (1)
  1. ASPIRIN [Suspect]
     Indication: HEADACHE
     Dosage: TEXT:6-8 TABLETS PER DAY
     Route: 048

REACTIONS (1)
  - THERAPEUTIC AGENT TOXICITY [None]
